FAERS Safety Report 5502950-1 (Version None)
Quarter: 2007Q4

REPORT INFORMATION
  Report Type: 
  Country: None (occurrence: None)
  Receive Date: 20071031
  Receipt Date: 20071029
  Transmission Date: 20080405
  Serious: Yes (Other)
  Sender: FDA-Public Use
  Company Number: B0492984A

PATIENT
  Age: 78 Year
  Sex: Female

DRUGS (6)
  1. REQUIP [Suspect]
     Dosage: 2MG THREE TIMES PER DAY
     Route: 048
     Dates: start: 20070806, end: 20070813
  2. SYMMETREL [Concomitant]
     Route: 048
  3. ARTANE [Concomitant]
     Route: 048
  4. KETAS [Concomitant]
     Route: 065
  5. GLYSENNID [Concomitant]
     Route: 048
  6. PRAMIPEXOLE DIHYDROCHLORIDE [Concomitant]
     Route: 048
     Dates: end: 20070805

REACTIONS (3)
  - DELIRIUM [None]
  - HALLUCINATION, VISUAL [None]
  - PORIOMANIA [None]
